FAERS Safety Report 5341519-9 (Version None)
Quarter: 2007Q2

REPORT INFORMATION
  Report Type: 
  Country: None (occurrence: None)
  Receive Date: 20070529
  Receipt Date: 20070529
  Transmission Date: 20071010
  Serious: Yes (Hospitalization)
  Sender: FDA-Public Use
  Company Number: None

PATIENT
  Age: 78 Year
  Sex: Female

DRUGS (7)
  1. OXYCODONE HCL [Suspect]
     Indication: PAIN
     Dosage: 10 MG
  2. IBUPROFEN [Concomitant]
  3. MICARDIS [Concomitant]
  4. SYNTHROID [Concomitant]
  5. CADUET [Concomitant]
  6. COLACE [Concomitant]
  7. SENNA [Concomitant]

REACTIONS (1)
  - NONSPECIFIC REACTION [None]
